FAERS Safety Report 6998125-X (Version None)
Quarter: 2010Q3

REPORT INFORMATION
  Report Type: 
  Country: None (occurrence: None)
  Receive Date: 20100920
  Receipt Date: 20070613
  Transmission Date: 20110219
  Serious: Yes (Other)
  Sender: FDA-Public Use
  Company Number: US-ASTRAZENECA-2006UW08174

PATIENT
  Age: 463 Month
  Sex: Female
  Weight: 96.2 kg

DRUGS (10)
  1. SEROQUEL [Suspect]
     Indication: SLEEP DISORDER
     Route: 048
     Dates: start: 20020101, end: 20050101
  2. SEROQUEL [Suspect]
     Dosage: 25-50 MG
     Route: 048
     Dates: start: 20040816
  3. TRAZODONE HCL [Concomitant]
  4. DILANTIN [Concomitant]
     Dates: start: 20021201
  5. PAXIL [Concomitant]
     Dates: start: 20020101
  6. PREDNISONE [Concomitant]
     Indication: SARCOIDOSIS
     Dates: start: 20040816
  7. XANAX [Concomitant]
     Dates: start: 20030623
  8. TOPAMAX [Concomitant]
     Dates: start: 20021202
  9. VERAPAMIL [Concomitant]
     Dates: start: 20021202
  10. ASPIRIN [Concomitant]
     Dosage: ONE A DAY
     Dates: start: 20021202

REACTIONS (3)
  - DIABETES MELLITUS [None]
  - PANCREATITIS [None]
  - TYPE 2 DIABETES MELLITUS [None]
